FAERS Safety Report 20430714 (Version 1)
Quarter: 2022Q1

REPORT INFORMATION
  Report Type: Spontaneous
  Country: US (occurrence: None)
  Receive Date: 20220203
  Receipt Date: 20220203
  Transmission Date: 20220424
  Serious: Yes (Other)
  Sender: FDA-Public Use
  Company Number: None

PATIENT
  Sex: Female

DRUGS (5)
  1. ENBREL [Suspect]
     Active Substance: ETANERCEPT
     Indication: Rheumatoid arthritis
     Dosage: FREQUENCY : WEEKLY;?
     Route: 058
     Dates: start: 20210803
  2. DICLOFENAC TAB 75MG DR [Concomitant]
  3. IBUPROFEN TAB 200MG [Concomitant]
  4. LEVOTHYROXIN TAB 75MCG [Concomitant]
  5. ORENCIA [Concomitant]
     Active Substance: ABATACEPT

REACTIONS (1)
  - Bell^s palsy [None]
